FAERS Safety Report 16107797 (Version 3)
Quarter: 2020Q2

REPORT INFORMATION
  Report Type: Spontaneous
  Country: CA (occurrence: CA)
  Receive Date: 20190322
  Receipt Date: 20200409
  Transmission Date: 20200713
  Serious: Yes (Other)
  Sender: FDA-Public Use
  Company Number: CA-BAUSCH-BL-2019-008606

PATIENT
  Age: 81 Year
  Sex: Male

DRUGS (7)
  1. GABAPENTIN. [Concomitant]
     Active Substance: GABAPENTIN
     Indication: PRODUCT USED FOR UNKNOWN INDICATION
     Dates: start: 201706, end: 20170817
  2. FLOMAX [Concomitant]
     Active Substance: TAMSULOSIN HYDROCHLORIDE
     Indication: PRODUCT USED FOR UNKNOWN INDICATION
     Dates: start: 20170817
  3. VERTEPORFIN (NVO) [Suspect]
     Active Substance: VERTEPORFIN
     Indication: PRODUCT USE IN UNAPPROVED INDICATION
  4. MIRABEGRON [Concomitant]
     Active Substance: MIRABEGRON
     Indication: PRODUCT USED FOR UNKNOWN INDICATION
  5. VERTEPORFIN (NVO) [Suspect]
     Active Substance: VERTEPORFIN
     Indication: PROSTATE CANCER RECURRENT
     Route: 042
     Dates: start: 20170824
  6. TYLENOL [Concomitant]
     Active Substance: ACETAMINOPHEN
     Indication: PRODUCT USED FOR UNKNOWN INDICATION
  7. MORPHINE SULPHATE [Concomitant]
     Active Substance: MORPHINE SULFATE
     Indication: PRODUCT USED FOR UNKNOWN INDICATION

REACTIONS (9)
  - Dysuria [Recovered/Resolved]
  - Product use in unapproved indication [Recovered/Resolved]
  - Urinary tract pain [Recovered/Resolved]
  - Micturition urgency [Recovered/Resolved]
  - Overdose [Recovered/Resolved]
  - Perineal pain [Recovered/Resolved]
  - Urinary incontinence [Recovered/Resolved]
  - Nocturia [Recovered/Resolved]
  - Microcytic anaemia [Recovered/Resolved]

NARRATIVE: CASE EVENT DATE: 20170825
